FAERS Safety Report 6706501-5 (Version None)
Quarter: 2010Q2

REPORT INFORMATION
  Report Type: 
  Country: None (occurrence: None)
  Receive Date: 20100503
  Receipt Date: 20100427
  Transmission Date: 20101027
  Serious: Yes (Death, Hospitalization)
  Sender: FDA-Public Use
  Company Number: PHHY2010US20774

PATIENT
  Sex: Female
  Weight: 68.027 kg

DRUGS (2)
  1. EXJADE [Suspect]
     Indication: MYELODYSPLASTIC SYNDROME
     Dosage: 3000 MG, QD
     Route: 048
     Dates: start: 20090106, end: 20091217
  2. EXJADE [Suspect]
     Dosage: UNK MG, QD
     Route: 048

REACTIONS (3)
  - ABDOMINAL PAIN [None]
  - CHEST PAIN [None]
  - DEATH [None]
